FAERS Safety Report 6125146-1 (Version None)
Quarter: 2009Q1

REPORT INFORMATION
  Report Type: 
  Country: None (occurrence: None)
  Receive Date: 20090317
  Receipt Date: 20090303
  Transmission Date: 20090719
  Serious: Yes (Hospitalization, Other)
  Sender: FDA-Public Use
  Company Number: DSU-2009-00531

PATIENT
  Age: 65 Year
  Sex: Male

DRUGS (10)
  1. BENICAR HCT [Suspect]
     Indication: HYPERTENSION
     Dosage: 40/25 MG, QD; PER ORAL,
     Dates: end: 20070101
  2. BENICAR HCT [Suspect]
     Indication: HYPERTENSION
     Dosage: 40/25 MG, QD; PER ORAL,
     Dates: start: 20081001, end: 20080101
  3. ATENOLOL [Concomitant]
  4. MERCAPTOPURINE [Concomitant]
  5. VITAMIN D [Concomitant]
  6. SERTRALINE [Concomitant]
  7. TEMAZEPAM [Concomitant]
  8. KLOR-CON [Concomitant]
  9. CALCIUM (CALCIUM) [Concomitant]
  10. ASPIRIN [Concomitant]

REACTIONS (6)
  - COELIAC DISEASE [None]
  - DEHYDRATION [None]
  - DIARRHOEA [None]
  - GASTRIC DISORDER [None]
  - LETHARGY [None]
  - WEIGHT DECREASED [None]
